FAERS Safety Report 13564451 (Version 1)
Quarter: 2017Q2

REPORT INFORMATION
  Report Type: Spontaneous
  Country: US (occurrence: US)
  Receive Date: 20170519
  Receipt Date: 20170519
  Transmission Date: 20170830
  Serious: Yes (Other)
  Sender: FDA-Public Use
  Company Number: US-AMGEN-USASP2017075113

PATIENT

DRUGS (1)
  1. PROLIA [Suspect]
     Active Substance: DENOSUMAB
     Indication: ANDROGEN THERAPY
     Dosage: UNK
     Route: 065

REACTIONS (2)
  - Osteitis deformans [Unknown]
  - Off label use [Unknown]
